FAERS Safety Report 5955780-0 (Version None)
Quarter: 2008Q4

REPORT INFORMATION
  Report Type: 
  Country: None (occurrence: None)
  Receive Date: 20081117
  Receipt Date: 20081110
  Transmission Date: 20090506
  Serious: Yes (Other)
  Sender: FDA-Public Use
  Company Number: JP-B.I. PHARMACEUTICALS,INC./RIDGEFIELD-2008-BP-16994NB

PATIENT
  Age: 52 Year
  Sex: Male

DRUGS (2)
  1. MOBIC [Suspect]
     Route: 048
  2. ADALAT [Concomitant]
     Route: 048

REACTIONS (1)
  - RHABDOMYOLYSIS [None]
